FAERS Safety Report 25422743 (Version 1)
Quarter: 2025Q2

REPORT INFORMATION
  Report Type: Spontaneous
  Country: US (occurrence: None)
  Receive Date: 20250610
  Receipt Date: 20250610
  Transmission Date: 20250717
  Serious: No
  Sender: FDA-CTU
  Company Number: None

PATIENT
  Age: 62 Year
  Sex: Male

DRUGS (9)
  1. ADBRY [Suspect]
     Active Substance: TRALOKINUMAB-LDRM
     Indication: Dermatitis atopic
     Dates: start: 20250608
  2. SILDENAFIL [Concomitant]
     Active Substance: SILDENAFIL
  3. MOUNJARO [Concomitant]
     Active Substance: TIRZEPATIDE
  4. testosterone cypinoate [Concomitant]
  5. LAMOTRIGINE [Concomitant]
     Active Substance: LAMOTRIGINE
  6. TRAZODONE [Concomitant]
     Active Substance: TRAZODONE HYDROCHLORIDE
  7. LURASIDONE [Concomitant]
     Active Substance: LURASIDONE
  8. GABAPENTIN [Concomitant]
     Active Substance: GABAPENTIN
  9. ROPINIROLE [Concomitant]
     Active Substance: ROPINIROLE

REACTIONS (3)
  - Tremor [None]
  - Accidental exposure to product [None]
  - Product use issue [None]

NARRATIVE: CASE EVENT DATE: 20250608
